FAERS Safety Report 25219728 (Version 1)
Quarter: 2025Q2

REPORT INFORMATION
  Report Type: Spontaneous
  Country: JP (occurrence: JP)
  Receive Date: 20250421
  Receipt Date: 20250421
  Transmission Date: 20250716
  Serious: Yes (Death)
  Sender: ACCORD
  Company Number: JP-Accord-479193

PATIENT
  Age: 9 Decade
  Sex: Male
  Weight: 41 kg

DRUGS (1)
  1. ITRACONAZOLE [Suspect]
     Active Substance: ITRACONAZOLE
     Indication: Bronchopulmonary aspergillosis
     Route: 048

REACTIONS (3)
  - Diarrhoea [Fatal]
  - Decreased appetite [Fatal]
  - Gastrointestinal toxicity [Fatal]
